FAERS Safety Report 12241853 (Version 1)
Quarter: 2016Q2

REPORT INFORMATION
  Report Type: Spontaneous
  Country: US (occurrence: US)
  Receive Date: 20160406
  Receipt Date: 20160406
  Transmission Date: 20160815
  Serious: Yes (Hospitalization, Other)
  Sender: FDA-Public Use
  Company Number: US-GLAXOSMITHKLINE-US2016GSK045874

PATIENT
  Age: 49 Year
  Sex: Female

DRUGS (1)
  1. COREG CR [Suspect]
     Active Substance: CARVEDILOL PHOSPHATE

REACTIONS (3)
  - Plasma cell myeloma [Unknown]
  - Cardiac failure congestive [Unknown]
  - Impaired work ability [Unknown]

NARRATIVE: CASE EVENT DATE: 201602
